FAERS Safety Report 9465524 (Version 2)
Quarter: 2013Q4

REPORT INFORMATION
  Report Type: Spontaneous
  Country: US (occurrence: US)
  Receive Date: 20130820
  Receipt Date: 20131017
  Transmission Date: 20140711
  Serious: Yes (Other)
  Sender: FDA-Public Use
  Company Number: US-AMGEN-USASP2013056966

PATIENT
  Age: 56 Year
  Sex: Female
  Weight: 55.33 kg

DRUGS (5)
  1. PROLIA [Suspect]
     Indication: OSTEOPOROSIS POSTMENOPAUSAL
     Dosage: UNK
     Route: 065
     Dates: start: 20130418
  2. CIPRO                              /00697201/ [Concomitant]
     Dosage: 500, BID X 3 DAYS
  3. OMEPRAZOLE [Concomitant]
     Dosage: 40, QD
  4. ROXICODONE [Concomitant]
     Dosage: 30 UNK, UNK
  5. XANAX [Concomitant]
     Dosage: 1 MG, UNK

REACTIONS (21)
  - Abdominal pain lower [Unknown]
  - Rash generalised [Not Recovered/Not Resolved]
  - Blister [Unknown]
  - Skin lesion [Not Recovered/Not Resolved]
  - Vomiting [Unknown]
  - Dyspnoea [Unknown]
  - Pruritus [Unknown]
  - Urticaria [Unknown]
  - Dysuria [Not Recovered/Not Resolved]
  - Scar [Not Recovered/Not Resolved]
  - Feeling abnormal [Unknown]
  - Contusion [Unknown]
  - Skin irritation [Unknown]
  - Pruritus genital [Not Recovered/Not Resolved]
  - Skin burning sensation [Unknown]
  - Pain [Unknown]
  - Nausea [Unknown]
  - Cystitis [Unknown]
  - Arthralgia [Unknown]
  - Back pain [Unknown]
  - Pain in extremity [Unknown]
